FAERS Safety Report 10458749 (Version 1)
Quarter: 2014Q3

REPORT INFORMATION
  Report Type: Spontaneous
  Country: US (occurrence: None)
  Receive Date: 20140916
  Receipt Date: 20140916
  Transmission Date: 20150326
  Serious: No
  Sender: FDA-Public Use
  Company Number: None

PATIENT
  Age: 77 Year
  Sex: Male
  Weight: 62.6 kg

DRUGS (9)
  1. SYNTHROID [Concomitant]
     Active Substance: LEVOTHYROXINE SODIUM
  2. PRAVASTATIN [Concomitant]
     Active Substance: PRAVASTATIN\PRAVASTATIN SODIUM
  3. COMBIVENT RESPIMAT [Concomitant]
     Active Substance: ALBUTEROL SULFATE\IPRATROPIUM BROMIDE
  4. PREDNISONE. [Suspect]
     Active Substance: PREDNISONE
     Indication: ILL-DEFINED DISORDER
     Dosage: 30
     Route: 048
     Dates: start: 201311
  5. TAMSULOSIN [Concomitant]
     Active Substance: TAMSULOSIN
  6. TUMS [Concomitant]
     Active Substance: CALCIUM CARBONATE
  7. MOTRIN [Concomitant]
     Active Substance: IBUPROFEN
  8. VERAPAMIL [Concomitant]
     Active Substance: VERAPAMIL HYDROCHLORIDE
  9. PEPCID [Concomitant]
     Active Substance: FAMOTIDINE

REACTIONS (1)
  - Back pain [None]

NARRATIVE: CASE EVENT DATE: 20140625
